FAERS Safety Report 7628760-7 (Version None)
Quarter: 2011Q3

REPORT INFORMATION
  Report Type: 
  Country: None (occurrence: None)
  Receive Date: 20110722
  Receipt Date: 20110711
  Transmission Date: 20111222
  Serious: Yes (Other)
  Sender: FDA-Public Use
  Company Number: US-BAYER-201032556NA

PATIENT
  Age: 44 Year
  Sex: Female
  Weight: 68.027 kg

DRUGS (7)
  1. ZITHROMAX [Concomitant]
     Dosage: UNK UNK, PRN
  2. ALBUTEROL SULFATE AUTOHALER [Concomitant]
     Dosage: UNK
     Dates: start: 20040101
  3. YASMIN [Suspect]
     Indication: PREMENSTRUAL SYNDROME
     Route: 048
  4. ASMANEX TWISTHALER [Concomitant]
     Dosage: UNK
     Dates: start: 20080101
  5. YAZ [Suspect]
     Indication: PREMENSTRUAL SYNDROME
  6. YASMIN [Suspect]
     Indication: CONTRACEPTION
     Dosage: UNK
     Route: 048
     Dates: start: 20040101, end: 20091201
  7. YAZ [Suspect]
     Indication: CONTRACEPTION
     Route: 048
     Dates: start: 20040101

REACTIONS (9)
  - HYPOTENSION [None]
  - PAIN [None]
  - DIZZINESS [None]
  - BILIARY COLIC [None]
  - HYPOAESTHESIA [None]
  - HEADACHE [None]
  - GALLBLADDER DISORDER [None]
  - LOSS OF CONSCIOUSNESS [None]
  - CHEST PAIN [None]
